FAERS Safety Report 18716030 (Version 6)
Quarter: 2021Q1

REPORT INFORMATION
  Report Type: Report from Study
  Country: US (occurrence: US)
  Receive Date: 20210108
  Receipt Date: 20210318
  Transmission Date: 20210419
  Serious: Yes (Death, Life-Threatening, Hospitalization, Other)
  Sender: FDA-Public Use
  Company Number: US-JNJFOC-20201205273

PATIENT
  Age: 50 Year
  Sex: Male
  Weight: 118.04 kg

DRUGS (5)
  1. MACITENTAN [Suspect]
     Active Substance: MACITENTAN
     Indication: PULMONARY ARTERIAL HYPERTENSION
     Route: 048
     Dates: start: 20201015
  2. EPOPROSTENOL SODIUM. [Suspect]
     Active Substance: EPOPROSTENOL SODIUM
     Route: 042
  3. FLOLAN [Concomitant]
     Active Substance: EPOPROSTENOL SODIUM
  4. ADEMPAS [Suspect]
     Active Substance: RIOCIGUAT
     Indication: PRODUCT USED FOR UNKNOWN INDICATION
     Route: 065
  5. EPOPROSTENOL SODIUM. [Suspect]
     Active Substance: EPOPROSTENOL SODIUM
     Indication: PULMONARY ARTERIAL HYPERTENSION
     Route: 042

REACTIONS (23)
  - Portal hypertension [Not Recovered/Not Resolved]
  - Hot flush [Unknown]
  - Flushing [Unknown]
  - Diarrhoea [Unknown]
  - Catheter site related reaction [Unknown]
  - Fatigue [Unknown]
  - Dyspnoea [Not Recovered/Not Resolved]
  - Product dose omission issue [Unknown]
  - General physical health deterioration [Not Recovered/Not Resolved]
  - Sleep apnoea syndrome [Unknown]
  - Liver injury [Unknown]
  - Liver disorder [Unknown]
  - Palliative care [Unknown]
  - Pulmonary arterial hypertension [Recovering/Resolving]
  - Cardiac failure congestive [Unknown]
  - Transplant evaluation [Unknown]
  - Dyspepsia [Unknown]
  - Decreased appetite [Unknown]
  - Death [Fatal]
  - Hospitalisation [Unknown]
  - Hypotension [Unknown]
  - Gastrointestinal sounds abnormal [Unknown]
  - Catheter site rash [Unknown]

NARRATIVE: CASE EVENT DATE: 202012
